FAERS Safety Report 7316025-2 (Version None)
Quarter: 2011Q1

REPORT INFORMATION
  Report Type: 
  Country: None (occurrence: None)
  Receive Date: 20110225
  Receipt Date: 20110219
  Transmission Date: 20110831
  Serious: Yes (Hospitalization)
  Sender: FDA-Public Use
  Company Number: PHHO2011CN03228

PATIENT
  Sex: Male
  Weight: 75 kg

DRUGS (8)
  1. BLINDED ALISKIREN [Suspect]
     Indication: CARDIAC FAILURE
     Dosage: CODE NOT BROKEN
     Route: 048
     Dates: start: 20110213
  2. BLINDED ENALAPRIL [Suspect]
     Indication: CARDIAC FAILURE
     Dosage: CODE NOT BROKEN
     Route: 048
     Dates: start: 20110213
  3. BLINDED NO TREATMENT RECEIVED [Suspect]
     Indication: CARDIAC FAILURE
     Dosage: CODE NOT BROKEN
     Route: 048
     Dates: start: 20110213
  4. INSULIN [Suspect]
  5. ALISKIREN [Suspect]
     Indication: CARDIAC FAILURE
     Dosage: 10 MG, BID
     Route: 048
     Dates: start: 20110111, end: 20110215
  6. FUROSEMIDE [Suspect]
  7. COMPARATOR ENALAPRIL [Suspect]
     Indication: CARDIAC FAILURE
     Dosage: 5 MG, BID
     Route: 048
     Dates: start: 20101224, end: 20100215
  8. DICLOFENAC SODIUM [Suspect]
     Dosage: 25 MG, QD
     Route: 048
     Dates: start: 20110128, end: 20110207

REACTIONS (2)
  - LIVER DISORDER [None]
  - DIABETIC NEPHROPATHY [None]
